FAERS Safety Report 9891313 (Version 2)
Quarter: 2014Q1

REPORT INFORMATION
  Report Type: Spontaneous
  Country: NL (occurrence: NL)
  Receive Date: 20140212
  Receipt Date: 20140217
  Transmission Date: 20141002
  Serious: No
  Sender: FDA-Public Use
  Company Number: NL-AMGEN-NLDSP2011070558

PATIENT
  Age: 48 Year
  Sex: Female

DRUGS (1)
  1. NEULASTA [Suspect]
     Indication: PROPHYLAXIS
     Dosage: 6 MG, 1X3W
     Route: 058
     Dates: start: 20110503

REACTIONS (2)
  - Adverse event [Unknown]
  - Pain [Unknown]
